FAERS Safety Report 14942756 (Version 1)
Quarter: 2018Q2

REPORT INFORMATION
  Report Type: Spontaneous
  Country: SK (occurrence: SK)
  Receive Date: 20180528
  Receipt Date: 20180528
  Transmission Date: 20180711
  Serious: Yes (Hospitalization)
  Sender: FDA-Public Use
  Company Number: SK-STRIDES ARCOLAB LIMITED-2018SP004049

PATIENT

DRUGS (6)
  1. TACROLIMUS. [Suspect]
     Active Substance: TACROLIMUS
     Dosage: 8 MG/DAY, DOSE REDUCED
     Route: 065
  2. MYCOPHENOLATE MOFETIL. [Suspect]
     Active Substance: MYCOPHENOLATE MOFETIL
     Indication: LIVER TRANSPLANT
     Dosage: UNK
     Route: 065
  3. TACROLIMUS. [Suspect]
     Active Substance: TACROLIMUS
     Indication: LIVER TRANSPLANT
     Dosage: 10 MG/DAY
     Route: 065
  4. METHYLPREDNISOLONE. [Suspect]
     Active Substance: METHYLPREDNISOLONE
     Dosage: 2 MG/DAY
     Route: 065
  5. MYCOPHENOLATE MOFETIL. [Suspect]
     Active Substance: MYCOPHENOLATE MOFETIL
     Dosage: 500 MG/DAY
     Route: 065
  6. METHYLPREDNISOLONE. [Suspect]
     Active Substance: METHYLPREDNISOLONE
     Indication: LIVER TRANSPLANT
     Dosage: 8 MG/DAY
     Route: 065

REACTIONS (11)
  - Resting tremor [Recovered/Resolved]
  - Encephalopathy [Recovered/Resolved]
  - Transplant rejection [Recovered/Resolved]
  - Loss of consciousness [Recovered/Resolved]
  - Disorientation [Recovered/Resolved]
  - Postural reflex impairment [Recovered/Resolved]
  - Parkinsonism [Recovered/Resolved]
  - Hypokinesia [Recovered/Resolved]
  - Bradykinesia [Recovered/Resolved]
  - Muscle rigidity [Recovered/Resolved]
  - Confusional state [Recovered/Resolved]
